FAERS Safety Report 15968723 (Version 2)
Quarter: 2019Q1

REPORT INFORMATION
  Report Type: Spontaneous
  Country: FR (occurrence: FR)
  Receive Date: 20190215
  Receipt Date: 20190220
  Transmission Date: 20190418
  Serious: Yes (Hospitalization)
  Sender: FDA-Public Use
  Company Number: FR-PFIZER INC-2019064757

PATIENT
  Age: 60 Year
  Sex: Male

DRUGS (11)
  1. BISOPROLOL FUMARATE. [Suspect]
     Active Substance: BISOPROLOL FUMARATE
     Dosage: 10 MG, UNK
     Route: 065
  2. APROVEL [Suspect]
     Active Substance: IRBESARTAN
     Dosage: 300 MG, UNK
     Route: 065
  3. LYRICA [Suspect]
     Active Substance: PREGABALIN
     Dosage: 450 MG, UNK
  4. KAYEXALATE [Suspect]
     Active Substance: SODIUM POLYSTYRENE SULFONATE
     Dosage: 1 DF, UNK
     Route: 065
  5. METFORMIN HCL [Suspect]
     Active Substance: METFORMIN HYDROCHLORIDE
     Dosage: 1 G, UNK
     Route: 065
  6. ALLOPURINOL. [Suspect]
     Active Substance: ALLOPURINOL
     Dosage: UNK
     Route: 065
  7. PERMIXON [Suspect]
     Active Substance: HERBALS\SAW PALMETTO
     Dosage: 160 MG, UNK
     Route: 065
  8. LIPANTHYL [Suspect]
     Active Substance: FENOFIBRATE
     Dosage: UNK
     Route: 065
  9. LIPANTHYL [Suspect]
     Active Substance: FENOFIBRATE
     Dosage: 67 MG, UNK
     Route: 065
  10. RAMIPRIL. [Suspect]
     Active Substance: RAMIPRIL
     Indication: PROTEINURIA
     Dosage: 5 MG, DAILY (QD)
     Route: 048
     Dates: start: 20110517, end: 20110913
  11. KARDEGIC [Suspect]
     Active Substance: ASPIRIN DL-LYSINE
     Dosage: 160 MG, UNK
     Route: 065

REACTIONS (1)
  - Lung disorder [Recovered/Resolved]

NARRATIVE: CASE EVENT DATE: 20110911
